FAERS Safety Report 8788818 (Version 7)
Quarter: 2013Q2

REPORT INFORMATION
  Report Type: Report from Study
  Country: JP (occurrence: JP)
  Receive Date: 20120915
  Receipt Date: 20130614
  Transmission Date: 20140414
  Serious: Yes (Hospitalization, Other)
  Sender: FDA-Public Use
  Company Number: JP-ABBOTT-12P-087-0977726-00

PATIENT
  Age: 74 Year
  Sex: Male
  Weight: 47.9 kg

DRUGS (12)
  1. HUMIRA [Suspect]
     Indication: RHEUMATOID ARTHRITIS
     Route: 058
     Dates: start: 20100921, end: 20110328
  2. HUMIRA [Suspect]
     Route: 058
     Dates: start: 20110328, end: 20120427
  3. HUMIRA [Suspect]
     Route: 058
     Dates: start: 20120427
  4. METHOTREXATE [Concomitant]
     Indication: RHEUMATOID ARTHRITIS
     Dates: start: 20101220, end: 20111129
  5. METHOTREXATE [Concomitant]
     Route: 048
     Dates: start: 20111129, end: 20120414
  6. METHOTREXATE [Concomitant]
     Route: 048
     Dates: start: 20120421
  7. RIFAMPICIN SODIUM [Concomitant]
     Indication: ANTIBIOTIC PROPHYLAXIS
     Route: 048
     Dates: start: 20111005
  8. FOLIC ACID [Concomitant]
     Indication: RHEUMATOID ARTHRITIS
     Dates: start: 200908
  9. ISONIAZID [Concomitant]
     Indication: PROPHYLAXIS
     Dates: start: 20110822, end: 20110912
  10. ISONIAZID [Concomitant]
     Indication: PULMONARY TUBERCULOSIS
  11. SALAZOSULFAPYRIDINE [Concomitant]
     Indication: RHEUMATOID ARTHRITIS
     Dates: start: 20090522, end: 20090619
  12. SALAZOSULFAPYRIDINE [Concomitant]
     Dates: start: 20090619, end: 20090828

REACTIONS (4)
  - Intraductal papillary mucinous neoplasm [Not Recovered/Not Resolved]
  - Meningioma malignant [Recovering/Resolving]
  - Dysarthria [Not Recovered/Not Resolved]
  - Pancreatic carcinoma [Not Recovered/Not Resolved]
